FAERS Safety Report 13638169 (Version 1)
Quarter: 2017Q2

REPORT INFORMATION
  Report Type: Spontaneous
  Country: US (occurrence: US)
  Receive Date: 20170609
  Receipt Date: 20170609
  Transmission Date: 20170830
  Serious: Yes (Hospitalization, Disabling, Other)
  Sender: FDA-Public Use
  Company Number: US-BAYER-2017-107037

PATIENT

DRUGS (1)
  1. AVELOX [Suspect]
     Active Substance: MOXIFLOXACIN HYDROCHLORIDE
     Dosage: UNK
     Dates: start: 200812

REACTIONS (13)
  - Neuropathy peripheral [None]
  - Paraesthesia [None]
  - Nervous system disorder [None]
  - Skin disorder [None]
  - Cardiovascular disorder [None]
  - Aortic aneurysm [None]
  - Pain [None]
  - Musculoskeletal injury [None]
  - Hypoaesthesia [None]
  - Asthenia [None]
  - Burning sensation [None]
  - Sensory disturbance [None]
  - Mental disorder [None]
